FAERS Safety Report 5123421-0 (Version None)
Quarter: 2006Q4

REPORT INFORMATION
  Report Type: 
  Country: None (occurrence: None)
  Receive Date: 20061005
  Receipt Date: 20060928
  Transmission Date: 20070319
  Serious: Yes (Hospitalization)
  Sender: FDA-Public Use
  Company Number: 2006117143

PATIENT
  Age: 53 Year
  Sex: Female

DRUGS (2)
  1. AZULFIDINE EN-TABS [Suspect]
     Indication: RHEUMATOID ARTHRITIS
     Dosage: 1000 MG (DAILY), ORAL
     Route: 048
     Dates: start: 20060727, end: 20060822
  2. FERROMIA (FERROUS CITRATE) [Concomitant]

REACTIONS (2)
  - ECZEMA [None]
  - PRURITUS GENERALISED [None]
